FAERS Safety Report 25870664 (Version 1)
Quarter: 2025Q4

REPORT INFORMATION
  Report Type: Spontaneous
  Country: EU (occurrence: EU)
  Receive Date: 20251001
  Receipt Date: 20251001
  Transmission Date: 20260117
  Serious: Yes (Hospitalization)
  Sender: PFIZER
  Company Number: None

PATIENT
  Age: 54 Year
  Sex: Female
  Weight: 92 kg

DRUGS (1)
  1. FILGRASTIM [Suspect]
     Active Substance: FILGRASTIM
     Indication: Haematopoietic stem cell mobilisation
     Dosage: FREQ:24 H;10 UG/KG/DIE FOR 5 CONSECUTIVE DAYS (FOR A TOTAL OF 5 VIALS IN 5 DAYS)
     Route: 058
     Dates: start: 20250914, end: 20250918

REACTIONS (4)
  - Chest pain [Recovering/Resolving]
  - Blood pressure inadequately controlled [Recovering/Resolving]
  - Bone pain [Recovering/Resolving]
  - Pyrexia [Recovering/Resolving]

NARRATIVE: CASE EVENT DATE: 20250915
